FAERS Safety Report 14176270 (Version 3)
Quarter: 2017Q4

REPORT INFORMATION
  Report Type: Report from Study
  Country: ZA (occurrence: ZA)
  Receive Date: 20171109
  Receipt Date: 20171219
  Transmission Date: 20180321
  Serious: Yes (Hospitalization, Other)
  Sender: FDA-Public Use
  Company Number: ZA-GILEAD-2017-0303502

PATIENT
  Age: 56 Year
  Sex: Female
  Weight: 37.8 kg

DRUGS (2)
  1. TENOFOVIR DISOPROXIL FUMARATE. [Suspect]
     Active Substance: TENOFOVIR DISOPROXIL FUMARATE
     Indication: HIV INFECTION
     Route: 065
  2. EFAVIRENZ/EMTRICITABINE/TENOFOVIR DISOPROXIL FUMARATE [Suspect]
     Active Substance: EFAVIRENZ\EMTRICITABINE\TENOFOVIR DISOPROXIL FUMARATE
     Indication: HIV INFECTION
     Dosage: 600 MG EFAVIRENZ CONTENT QD
     Route: 065

REACTIONS (4)
  - Ataxia [Recovered/Resolved]
  - Encephalopathy [Recovered/Resolved]
  - Drug level increased [Recovered/Resolved]
  - Chronic kidney disease [Not Recovered/Not Resolved]
